FAERS Safety Report 10447013 (Version 1)
Quarter: 2014Q3

REPORT INFORMATION
  Report Type: Spontaneous
  Country: JP (occurrence: None)
  Receive Date: 20140909
  Receipt Date: 20140909
  Transmission Date: 20150326
  Serious: Yes (Other)
  Sender: FDA-Public Use
  Company Number: 2014-20285

PATIENT
  Sex: Male

DRUGS (2)
  1. BAYASPIRIN (ACETYLSALICYLIC ACID) (ACETYLSALICYLIC ACID) [Suspect]
     Active Substance: ASPIRIN
     Dosage: UNK, ORAL
  2. EYLEA [Suspect]
     Active Substance: AFLIBERCEPT
     Indication: AGE-RELATED MACULAR DEGENERATION
     Dosage: UNK, INTRAOCULAR
     Dates: start: 20131126, end: 20131126

REACTIONS (2)
  - Vitreous haemorrhage [None]
  - Myocardial infarction [None]

NARRATIVE: CASE EVENT DATE: 20140828
